FAERS Safety Report 4680110-4 (Version None)
Quarter: 2005Q2

REPORT INFORMATION
  Report Type: 
  Country: None (occurrence: None)
  Receive Date: 20050531
  Receipt Date: 20050519
  Transmission Date: 20051028
  Serious: Yes (Hospitalization)
  Sender: FDA-Public Use
  Company Number: 167-20785-05050379 (0)

PATIENT
  Age: 70 Year
  Sex: Male

DRUGS (11)
  1. THALIDOMIDE-PHARMION (THALIDOMIDE) (50 MILLIGRAM, CAPSULES) [Suspect]
     Indication: SMALL CELL LUNG CANCER STAGE UNSPECIFIED
     Dosage: 100 MG, DAILY, ORAL
     Route: 048
     Dates: start: 20050401, end: 20050513
  2. CARBOPLATIN [Suspect]
     Indication: SMALL CELL LUNG CANCER STAGE UNSPECIFIED
     Dosage: 750 MG, DAILY
     Dates: start: 20050422, end: 20050422
  3. ETOPOSIDE [Suspect]
     Indication: SMALL CELL LUNG CANCER STAGE UNSPECIFIED
     Dosage: 200 MG, DAILY, ORAL
     Route: 048
     Dates: start: 20050422, end: 20050424
  4. ASPIRIN [Concomitant]
  5. PERINDOPRIL (PERINDOPRIL) [Concomitant]
  6. DEXAMETHASONE [Concomitant]
  7. BECLOMETHASONE (BECLOMEASONE DIPROPIONATE) [Concomitant]
  8. LANSOPRAZOLE [Concomitant]
  9. CIPROFLOXACIN [Concomitant]
  10. GRANISETRON (GRANISETRON) [Concomitant]
  11. METOCLOPRAMIDE [Concomitant]

REACTIONS (4)
  - AGGRESSION [None]
  - CONFUSIONAL STATE [None]
  - FULL BLOOD COUNT ABNORMAL [None]
  - MENTAL DISORDER [None]
